FAERS Safety Report 9093586 (Version 1)
Quarter: 2013Q1

REPORT INFORMATION
  Report Type: Spontaneous
  Country: PR (occurrence: PR)
  Receive Date: 20130131
  Receipt Date: 20130131
  Transmission Date: 20140127
  Serious: No
  Sender: FDA-Public Use
  Company Number: PR-ABBOTT-12P-131-0966417-00

PATIENT
  Age: 64 None
  Sex: Female
  Weight: 70.37 kg

DRUGS (11)
  1. HUMIRA [Suspect]
     Indication: RHEUMATOID ARTHRITIS
     Route: 058
     Dates: start: 2012, end: 201208
  2. HUMIRA [Suspect]
     Route: 058
     Dates: start: 201208
  3. SYNTHROID [Concomitant]
     Indication: THYROID DISORDER
     Route: 048
  4. SIMVASTATIN [Concomitant]
     Indication: HYPERLIPIDAEMIA
     Route: 048
  5. HYZAAR [Concomitant]
     Indication: HYPERTENSION
     Route: 048
  6. METHOTREXATE [Concomitant]
     Indication: RHEUMATOID ARTHRITIS
     Dosage: 6 - 2.5 MG TABLETS WEEKLY
     Route: 048
     Dates: end: 201207
  7. FOLIC ACID [Concomitant]
     Indication: PRODUCT USED FOR UNKNOWN INDICATION
     Route: 048
  8. VITAMIN D [Concomitant]
     Indication: PRODUCT USED FOR UNKNOWN INDICATION
     Route: 048
  9. UNKNOWN MEDICATION [Concomitant]
     Indication: DIABETES MELLITUS
     Route: 048
     Dates: end: 201208
  10. UNKNOWN MEDICATION [Concomitant]
     Indication: DIABETES MELLITUS
     Route: 048
     Dates: start: 201208
  11. UNKNOWN MEDICATION [Concomitant]
     Indication: PRODUCT USED FOR UNKNOWN INDICATION
     Route: 048

REACTIONS (8)
  - Pyrexia [Recovered/Resolved]
  - Malaise [Unknown]
  - Insomnia [Unknown]
  - Nasopharyngitis [Recovered/Resolved]
  - Fall [Not Recovered/Not Resolved]
  - Jaw fracture [Not Recovered/Not Resolved]
  - Lip swelling [Not Recovered/Not Resolved]
  - Local swelling [Not Recovered/Not Resolved]
